FAERS Safety Report 8192619-X (Version None)
Quarter: 2012Q1

REPORT INFORMATION
  Report Type: 
  Country: None (occurrence: None)
  Receive Date: 20120221
  Receipt Date: 20111107
  Transmission Date: 20120608
  Serious: No
  Sender: FDA-Public Use
  Company Number: 1000025265

PATIENT
  Age: 68 Year
  Sex: Female

DRUGS (11)
  1. CLONAZEPAM [Concomitant]
  2. VIIBRYD [Suspect]
     Indication: DEPRESSION
     Dosage: 10 MG (10 MG, 1 IN 1 D), ORAL
     Route: 048
     Dates: start: 20110901, end: 20110101
  3. BONIVA (IBANDRONATE SODIUM) (IBANDRONATE SODIUM) [Concomitant]
  4. PROTONIX (PANTOPRAZOLE SODIUM SESQUIHYDRATE) (PANTOPRAZOLE SODIUM SESQ [Concomitant]
  5. POTASSIUM CHLORIDE [Concomitant]
  6. VITAMIN D (VITAMIN D) (VITAMIN D) [Concomitant]
  7. SYNTHROID (LEVOTHYROXINE SODIUM) (LEVOTHYROXINE SODIUM) [Concomitant]
  8. VITAMIN C (ASCORBIC ACID) (ASCORBIC ACID) [Concomitant]
  9. TOPROL (METOPROLOL SUCCINATE) (METOPROLOL SUCCINATE) [Concomitant]
  10. CRESTOR [Concomitant]
  11. PROVIGIL [Concomitant]

REACTIONS (3)
  - BALANCE DISORDER [None]
  - MYALGIA [None]
  - MUSCLE SPASMS [None]
